FAERS Safety Report 7443637-8 (Version None)
Quarter: 2011Q2

REPORT INFORMATION
  Report Type: 
  Country: None (occurrence: None)
  Receive Date: 20110428
  Receipt Date: 20110415
  Transmission Date: 20111010
  Serious: Yes (Hospitalization)
  Sender: FDA-Public Use
  Company Number: DE-ROCHE-773687

PATIENT
  Sex: Male
  Weight: 86 kg

DRUGS (6)
  1. VIRAMUNE [Concomitant]
     Indication: HIV INFECTION
     Route: 048
     Dates: start: 20100503
  2. RIBAVIRIN [Suspect]
     Route: 048
     Dates: start: 20110208
  3. PEGINTERFERON ALFA-2A [Suspect]
     Route: 058
     Dates: start: 20110208
  4. CIPRALEX [Concomitant]
     Route: 048
     Dates: start: 20101123
  5. IBUPROFEN [Concomitant]
     Dosage: AS REQUIRED
     Route: 048
     Dates: start: 20110308
  6. TRUVADA [Concomitant]
     Indication: HIV INFECTION
     Route: 048
     Dates: start: 20100503

REACTIONS (1)
  - ALCOHOLISM [None]
